FAERS Safety Report 11798895 (Version 1)
Quarter: 2015Q4

REPORT INFORMATION
  Report Type: Spontaneous
  Country: US (occurrence: US)
  Receive Date: 20151203
  Receipt Date: 20151203
  Transmission Date: 20160305
  Serious: No
  Sender: FDA-Public Use
  Company Number: US-GLAXOSMITHKLINE-US2015GSK170982

PATIENT
  Sex: Female
  Weight: 107 kg

DRUGS (3)
  1. NICORETTE [Suspect]
     Active Substance: NICOTINE
     Dosage: UNK
  2. NICORETTE [Suspect]
     Active Substance: NICOTINE
     Dosage: 21 UNK, UNK
  3. NICORETTE [Suspect]
     Active Substance: NICOTINE
     Indication: SMOKING CESSATION THERAPY
     Dosage: 14 MG, UNK

REACTIONS (5)
  - Depression [Recovered/Resolved]
  - Overdose [Unknown]
  - Tobacco user [Unknown]
  - Wrong technique in product usage process [Unknown]
  - Malaise [Recovered/Resolved]
